FAERS Safety Report 7409711-7 (Version None)
Quarter: 2011Q2

REPORT INFORMATION
  Report Type: 
  Country: None (occurrence: None)
  Receive Date: 20110412
  Receipt Date: 20110405
  Transmission Date: 20111010
  Serious: Yes (Death, Other)
  Sender: FDA-Public Use
  Company Number: JP-JNJFOC-20110403452

PATIENT
  Age: 46 Year
  Sex: Female

DRUGS (3)
  1. DUROTEP MT [Suspect]
     Indication: PAIN IN EXTREMITY
     Route: 062
  2. DUROTEP MT [Suspect]
     Route: 062
  3. DUROTEP MT [Suspect]
     Route: 062

REACTIONS (3)
  - OVERDOSE [None]
  - DEATH [None]
  - DRUG PRESCRIBING ERROR [None]
